FAERS Safety Report 11682575 (Version 4)
Quarter: 2017Q2

REPORT INFORMATION
  Report Type: Spontaneous
  Country: US (occurrence: US)
  Receive Date: 20151029
  Receipt Date: 20170522
  Transmission Date: 20170829
  Serious: No
  Sender: FDA-Public Use
  Company Number: US-ACTELION PHARMACEUTICALS US, INC.-A-NJ2014-99283

PATIENT
  Age: 36 Year
  Sex: Female
  Weight: 63.49 kg

DRUGS (2)
  1. ADCIRCA [Concomitant]
     Active Substance: TADALAFIL
  2. TRACLEER [Suspect]
     Active Substance: BOSENTAN
     Indication: PULMONARY ARTERIAL HYPERTENSION
     Dosage: 62.5 MG, BID
     Route: 048

REACTIONS (7)
  - Nasal congestion [Unknown]
  - Viral upper respiratory tract infection [Unknown]
  - Cough [Unknown]
  - Hypovitaminosis [Unknown]
  - Dyspepsia [Unknown]
  - Headache [Unknown]
  - Pyrexia [Unknown]

NARRATIVE: CASE EVENT DATE: 20140526
